FAERS Safety Report 19919806 (Version 1)
Quarter: 2021Q4

REPORT INFORMATION
  Report Type: Spontaneous
  Country: IT (occurrence: IT)
  Receive Date: 20211005
  Receipt Date: 20211005
  Transmission Date: 20220303
  Serious: Yes (Hospitalization)
  Sender: FDA-Public Use
  Company Number: 2021A749662

PATIENT
  Age: 42 Year
  Sex: Female

DRUGS (3)
  1. LYNPARZA [Suspect]
     Active Substance: OLAPARIB
     Indication: Breast cancer
     Route: 048
     Dates: start: 20201007, end: 20210712
  2. CEFTRIAXONE SODIUM [Concomitant]
     Active Substance: CEFTRIAXONE SODIUM
     Indication: Implant site extravasation
     Dosage: 2.0G UNKNOWN
     Route: 030
     Dates: start: 20210630, end: 20210712
  3. TARGOSID [Concomitant]
     Active Substance: TEICOPLANIN
     Indication: Implant site extravasation
     Dosage: 400.0MG UNKNOWN
     Route: 030
     Dates: start: 20210630, end: 20210712

REACTIONS (3)
  - Pancytopenia [Recovered/Resolved]
  - Hyperpyrexia [Recovered/Resolved]
  - Asthenia [Recovered/Resolved]

NARRATIVE: CASE EVENT DATE: 20210712
